FAERS Safety Report 9482726 (Version 1)
Quarter: 2013Q3

REPORT INFORMATION
  Report Type: Spontaneous
  Country: GB (occurrence: GB)
  Receive Date: 20130828
  Receipt Date: 20130828
  Transmission Date: 20140515
  Serious: Yes (Disabling)
  Sender: FDA-Public Use
  Company Number: GB-PFIZER INC-2013246382

PATIENT
  Age: 63 Year
  Sex: Male
  Weight: 107.95 kg

DRUGS (13)
  1. DOXAZOSIN MESILATE [Suspect]
     Dosage: UNK
     Dates: start: 20130424
  2. GABAPENTIN [Concomitant]
     Dosage: UNK
     Dates: start: 20130424
  3. FUROSEMIDE [Concomitant]
     Dosage: UNK
     Dates: start: 20130424
  4. ALLOPURINOL [Concomitant]
     Dosage: UNK
     Dates: start: 20130424
  5. VITAMIN B [Concomitant]
     Dosage: UNK
     Dates: start: 20130503, end: 20130531
  6. VITAMIN B [Concomitant]
     Dosage: UNK
     Dates: start: 20130702, end: 20130730
  7. THIAMINE [Concomitant]
     Dosage: UNK
     Dates: start: 20130503, end: 20130531
  8. THIAMINE [Concomitant]
     Dosage: UNK
     Dates: start: 20130702, end: 20130730
  9. SPIRONOLACTONE [Concomitant]
     Dosage: UNK
     Dates: start: 20130621
  10. CO-CODAMOL [Concomitant]
     Dosage: UNK
     Dates: start: 20130702
  11. ZOPICLONE [Concomitant]
     Dosage: UNK
     Dates: start: 20130718
  12. SILDENAFIL [Concomitant]
     Dosage: UNK
     Dates: start: 20130730, end: 20130806
  13. CETRABEN [Concomitant]
     Dosage: UNK

REACTIONS (1)
  - Joint swelling [Recovering/Resolving]
